FAERS Safety Report 6879222-6 (Version None)
Quarter: 2010Q3

REPORT INFORMATION
  Report Type: 
  Country: None (occurrence: None)
  Receive Date: 20100728
  Receipt Date: 20100722
  Transmission Date: 20110219
  Serious: Yes (Death)
  Sender: FDA-Public Use
  Company Number: PHHY2010US48429

PATIENT
  Sex: Female
  Weight: 58.05 kg

DRUGS (1)
  1. EXJADE [Suspect]
     Indication: MINERAL METABOLISM DISORDER
     Dosage: 2000 MG DAILY
     Route: 048
     Dates: start: 20091111, end: 20100701

REACTIONS (1)
  - DEATH [None]
